FAERS Safety Report 15235498 (Version 1)
Quarter: 2018Q4

REPORT INFORMATION
  Report Type: Spontaneous
  Country: FR (occurrence: FR)
  Receive Date: 20180803
  Receipt Date: 20180803
  Transmission Date: 20190204
  Serious: Yes (Hospitalization, Other)
  Sender: FDA-Public Use
  Company Number: FR-ACCORD-070439

PATIENT
  Age: 86 Year
  Sex: Male
  Weight: 62 kg

DRUGS (2)
  1. CLOPIDOGREL [Suspect]
     Active Substance: CLOPIDOGREL BISULFATE
     Indication: PERIPHERAL ARTERIAL OCCLUSIVE DISEASE
     Route: 048
     Dates: end: 20170511
  2. PREVISCAN (FLUINDIONE) [Interacting]
     Active Substance: FLUINDIONE
     Indication: ATRIAL FIBRILLATION
     Dosage: INR CIBLE : 2-3
     Route: 048
     Dates: end: 20170511

REACTIONS (3)
  - Gastrointestinal haemorrhage [Recovered/Resolved]
  - Drug interaction [Unknown]
  - Haemorrhagic anaemia [Recovered/Resolved]

NARRATIVE: CASE EVENT DATE: 20170510
